FAERS Safety Report 6913180-0 (Version None)
Quarter: 2010Q3

REPORT INFORMATION
  Report Type: 
  Country: None (occurrence: None)
  Receive Date: 20100806
  Receipt Date: 20100211
  Transmission Date: 20110219
  Serious: Yes (Other)
  Sender: FDA-Public Use
  Company Number: US-PFIZER INC-2008050796

PATIENT
  Sex: Female
  Weight: 99.773 kg

DRUGS (3)
  1. GLIPIZIDE [Suspect]
     Indication: DIABETES MELLITUS
     Dosage: 10 MG, 3X/DAY
     Route: 048
     Dates: start: 20070101
  2. DILTIAZEM [Concomitant]
     Indication: HYPERTENSION
  3. TIMOLOL [Concomitant]
     Indication: GLAUCOMA
     Route: 047

REACTIONS (3)
  - ALOPECIA [None]
  - BLOOD GLUCOSE DECREASED [None]
  - URINE ODOUR ABNORMAL [None]
